FAERS Safety Report 7157019-X (Version None)
Quarter: 2010Q4

REPORT INFORMATION
  Report Type: 
  Country: None (occurrence: None)
  Receive Date: 20101214
  Receipt Date: 20100219
  Transmission Date: 20110411
  Serious: No
  Sender: FDA-Public Use
  Company Number: US-ASTRAZENECA-2010SE03185

PATIENT
  Sex: Female

DRUGS (3)
  1. CRESTOR [Suspect]
     Indication: BLOOD CHOLESTEROL INCREASED
     Route: 048
     Dates: start: 20091101, end: 20091201
  2. CRESTOR [Suspect]
     Route: 048
     Dates: start: 20091201, end: 20100101
  3. CRESTOR [Suspect]
     Route: 048
     Dates: start: 20100105, end: 20100113

REACTIONS (1)
  - DYSPEPSIA [None]
